FAERS Safety Report 7978208-8 (Version None)
Quarter: 2011Q4

REPORT INFORMATION
  Report Type: 
  Country: None (occurrence: None)
  Receive Date: 20111129
  Receipt Date: 20111005
  Transmission Date: 20120403
  Serious: No
  Sender: FDA-Public Use
  Company Number: PHEH2011US05183

PATIENT
  Age: 34 Year
  Sex: Male
  Weight: 63.5036 kg

DRUGS (5)
  1. LAMICTAL [Concomitant]
  2. CALCIUM D (CALCIUM, COLECALCIFEROL) [Concomitant]
  3. ULCIDINE (CIMETIDINE) [Concomitant]
  4. ANTIALLERGIC AGENTS (NO INGREDIENTS/SUBSTANCES) [Concomitant]
  5. AFINITOR [Suspect]
     Indication: ASTROCYTOMA, LOW GRADE
     Dosage: 5 MG, QD, ORAL
     Route: 048
     Dates: start: 20110724, end: 20110929

REACTIONS (4)
  - DECREASED APPETITE [None]
  - WEIGHT DECREASED [None]
  - HYPOPHAGIA [None]
  - HUNGER [None]
